FAERS Safety Report 8602859-0 (Version None)
Quarter: 2012Q3

REPORT INFORMATION
  Report Type: 
  Country: None (occurrence: None)
  Receive Date: 20120817
  Receipt Date: 20120810
  Transmission Date: 20120928
  Serious: Yes (Other)
  Sender: FDA-Public Use
  Company Number: US-GLAXOSMITHKLINE-A0989085A

PATIENT
  Age: 65 Year
  Sex: Male

DRUGS (2)
  1. CONCURRENT MEDICATIONS [Concomitant]
  2. VENTOLIN [Suspect]
     Indication: PRODUCT USED FOR UNKNOWN INDICATION
     Dosage: 2PUFF SIX TIMES PER DAY
     Route: 055
     Dates: start: 20120101

REACTIONS (2)
  - ASTHMA [None]
  - PRODUCT QUALITY ISSUE [None]
